FAERS Safety Report 9311728 (Version 2)
Quarter: 2013Q2

REPORT INFORMATION
  Report Type: Spontaneous
  Country: BR (occurrence: BR)
  Receive Date: 20130528
  Receipt Date: 20130620
  Transmission Date: 20140414
  Serious: Yes (Other)
  Sender: FDA-Public Use
  Company Number: BR-PFIZER INC-2013158162

PATIENT
  Age: 52 Year
  Sex: Female

DRUGS (2)
  1. LIPITOR [Suspect]
     Dosage: 40 MG (ONE TABLET), 1X/DAY
     Route: 048
     Dates: start: 20130428
  2. ARADOIS [Concomitant]
     Dosage: UNK

REACTIONS (2)
  - Infarction [Unknown]
  - Venous occlusion [Unknown]
